FAERS Safety Report 13048256 (Version 2)
Quarter: 2017Q1

REPORT INFORMATION
  Report Type: Spontaneous
  Country: US (occurrence: US)
  Receive Date: 20161220
  Receipt Date: 20170120
  Transmission Date: 20170428
  Serious: Yes (Hospitalization)
  Sender: FDA-Public Use
  Company Number: US-RELYPSA-RLY2016004289

PATIENT
  Age: 69 Year
  Sex: Female

DRUGS (14)
  1. XARELTO [Concomitant]
     Active Substance: RIVAROXABAN
  2. GLYBURIDE. [Concomitant]
     Active Substance: GLYBURIDE
  3. JANUVIA [Concomitant]
     Active Substance: SITAGLIPTIN PHOSPHATE
  4. DILTIAZEM HCL [Concomitant]
     Active Substance: DILTIAZEM HYDROCHLORIDE
  5. VELTASSA [Suspect]
     Active Substance: PATIROMER
     Indication: HYPERKALAEMIA
     Dosage: 16.8 G, QD
     Route: 048
     Dates: start: 20160217, end: 201612
  6. LEVEMIR [Concomitant]
     Active Substance: INSULIN DETEMIR
  7. FERROUS GLUCONATE [Concomitant]
     Active Substance: FERROUS GLUCONATE
  8. ALLOPURINOL. [Concomitant]
     Active Substance: ALLOPURINOL
  9. FISH OIL CONCENTRATE [Concomitant]
     Active Substance: FISH OIL
  10. CRESTOR [Concomitant]
     Active Substance: ROSUVASTATIN CALCIUM
  11. TYLENOL [Concomitant]
     Active Substance: ACETAMINOPHEN
  12. DEPAKOTE [Concomitant]
     Active Substance: DIVALPROEX SODIUM
  13. ATENOLOL. [Concomitant]
     Active Substance: ATENOLOL
  14. VELTASSA [Suspect]
     Active Substance: PATIROMER
     Dosage: 16.8 G, QD
     Route: 048
     Dates: start: 201612

REACTIONS (1)
  - Pneumonia [Unknown]

NARRATIVE: CASE EVENT DATE: 20161202
